FAERS Safety Report 20377717 (Version 1)
Quarter: 2022Q1

REPORT INFORMATION
  Report Type: Spontaneous
  Country: US (occurrence: US)
  Receive Date: 20220126
  Receipt Date: 20220126
  Transmission Date: 20220423
  Serious: No
  Sender: FDA-Public Use
  Company Number: US-BAUSCH-BL-2022-001426

PATIENT
  Age: 42 Year
  Sex: Female

DRUGS (2)
  1. APLENZIN [Suspect]
     Active Substance: BUPROPION HYDROBROMIDE
     Indication: Seasonal affective disorder
     Dosage: BEFORE BEDTIME EACH NIGHT
     Route: 048
     Dates: start: 2021
  2. APLENZIN [Suspect]
     Active Substance: BUPROPION HYDROBROMIDE
     Indication: Anxiety
     Dosage: BEFORE BEDTIME EACH NIGHT
     Route: 048

REACTIONS (4)
  - Nausea [Recovered/Resolved]
  - Headache [Not Recovered/Not Resolved]
  - Therapy change [Unknown]
  - Incorrect dose administered [Unknown]
